FAERS Safety Report 13262554 (Version 4)
Quarter: 2017Q1

REPORT INFORMATION
  Report Type: Report from Study
  Country: None (occurrence: US)
  Receive Date: 20170223
  Receipt Date: 20170308
  Transmission Date: 20170428
  Serious: Yes (Death, Life-Threatening, Hospitalization, Other)
  Sender: FDA-Public Use
  Company Number: US-ABBVIE-17K-163-1883433-00

PATIENT
  Age: 67 Year
  Sex: Male
  Weight: 127.12 kg

DRUGS (19)
  1. ATORVASTATIN [Concomitant]
     Active Substance: ATORVASTATIN
     Indication: BLOOD CHOLESTEROL INCREASED
  2. LINZESS [Concomitant]
     Active Substance: LINACLOTIDE
     Indication: PRODUCT USED FOR UNKNOWN INDICATION
  3. TRAVOPROST [Concomitant]
     Active Substance: TRAVOPROST
     Indication: GLAUCOMA
  4. HUMIRA [Suspect]
     Active Substance: ADALIMUMAB
     Indication: PSORIASIS
     Route: 058
     Dates: start: 20130820, end: 201701
  5. COREG [Concomitant]
     Active Substance: CARVEDILOL
     Indication: HYPERTENSION
  6. GLUCOPHAGE [Concomitant]
     Active Substance: METFORMIN HYDROCHLORIDE
     Indication: DIABETES MELLITUS
  7. VICTOZA [Concomitant]
     Active Substance: LIRAGLUTIDE
     Indication: DIABETES MELLITUS
  8. BENADRYL [Concomitant]
     Active Substance: DIPHENHYDRAMINE HYDROCHLORIDE
     Indication: HYPERSENSITIVITY
  9. COREG [Concomitant]
     Active Substance: CARVEDILOL
     Indication: ARRHYTHMIA
  10. TIMOLOL MALEATE. [Concomitant]
     Active Substance: TIMOLOL MALEATE
     Indication: GLAUCOMA
  11. LOVAZA [Concomitant]
     Active Substance: OMEGA-3-ACID ETHYL ESTERS
     Indication: BLOOD CHOLESTEROL INCREASED
  12. ALTACE [Concomitant]
     Active Substance: RAMIPRIL
     Indication: HYPERTENSION
  13. FENOFIBRATE. [Concomitant]
     Active Substance: FENOFIBRATE
     Indication: BLOOD CHOLESTEROL INCREASED
  14. OXYGEN. [Concomitant]
     Active Substance: OXYGEN
     Indication: PRODUCT USED FOR UNKNOWN INDICATION
  15. POTASSIUM CHLORIDE. [Concomitant]
     Active Substance: POTASSIUM CHLORIDE
     Indication: HYPERTENSION
  16. LASIX [Concomitant]
     Active Substance: FUROSEMIDE
     Indication: HYPERTENSION
  17. ASPIRIN. [Concomitant]
     Active Substance: ASPIRIN
     Indication: BLOOD PRESSURE MEASUREMENT
  18. AMIODARONE [Concomitant]
     Active Substance: AMIODARONE
     Indication: HYPERTENSION
  19. EPLERENONE. [Concomitant]
     Active Substance: EPLERENONE
     Indication: HYPERTENSION

REACTIONS (9)
  - Blood glucose increased [Unknown]
  - Ventricular tachycardia [Recovered/Resolved]
  - Insomnia [Not Recovered/Not Resolved]
  - Coronary artery disease [Fatal]
  - Myocardial infarction [Not Recovered/Not Resolved]
  - Ischaemic cardiomyopathy [Fatal]
  - Ejection fraction decreased [Not Recovered/Not Resolved]
  - Ventricular tachycardia [Fatal]
  - Blood urea increased [Unknown]

NARRATIVE: CASE EVENT DATE: 2016
